FAERS Safety Report 4694846-2 (Version None)
Quarter: 2005Q2

REPORT INFORMATION
  Report Type: 
  Country: None (occurrence: None)
  Receive Date: 20050620
  Receipt Date: 20050609
  Transmission Date: 20051028
  Serious: Yes (Other)
  Sender: FDA-Public Use
  Company Number: 2005UW08975

PATIENT
  Age: 48 Year
  Sex: Male

DRUGS (5)
  1. CRESTOR [Suspect]
     Route: 048
  2. CELESTODERM V [Concomitant]
  3. ASPIRIN [Concomitant]
  4. ZANTAC [Concomitant]
  5. ADVIL [Concomitant]

REACTIONS (7)
  - ABNORMAL DREAMS [None]
  - ASTHENOPIA [None]
  - BLOOD CREATINE PHOSPHOKINASE INCREASED [None]
  - DEPRESSION [None]
  - MYALGIA [None]
  - SELF-INJURIOUS IDEATION [None]
  - SLEEP DISORDER [None]
